FAERS Safety Report 12406394 (Version 4)
Quarter: 2016Q4

REPORT INFORMATION
  Report Type: Spontaneous
  Country: US (occurrence: US)
  Receive Date: 20160526
  Receipt Date: 20161104
  Transmission Date: 20170207
  Serious: Yes (Hospitalization, Other)
  Sender: FDA-Public Use
  Company Number: US-BAYER-2016-097229

PATIENT
  Age: 25 Year
  Sex: Female
  Weight: 99.77 kg

DRUGS (3)
  1. CEPHALEXIN MONOHYDRATE. [Concomitant]
     Active Substance: CEPHALEXIN MONOHYDRATE
  2. MIRENA [Suspect]
     Active Substance: LEVONORGESTREL
     Indication: CONTRACEPTION
     Dosage: 20 MCG/24HR, CONT
     Route: 015
     Dates: start: 20120712, end: 20150803
  3. SODIUM SULFATE [Concomitant]
     Active Substance: SODIUM SULFATE

REACTIONS (10)
  - Urinary tract infection [None]
  - Device difficult to use [None]
  - Procedural pain [Recovered/Resolved]
  - Nipple exudate bloody [None]
  - Device breakage [None]
  - Pelvic pain [Not Recovered/Not Resolved]
  - Palpitations [None]
  - Pelvic inflammatory disease [None]
  - Uterine perforation [Not Recovered/Not Resolved]
  - Back pain [Not Recovered/Not Resolved]

NARRATIVE: CASE EVENT DATE: 201307
